FAERS Safety Report 14731704 (Version 8)
Quarter: 2018Q2

REPORT INFORMATION
  Report Type: Report from Study
  Country: CA (occurrence: CA)
  Receive Date: 20180407
  Receipt Date: 20180629
  Transmission Date: 20180711
  Serious: Yes (Other)
  Sender: FDA-Public Use
  Company Number: PHHY2015CA091372

PATIENT
  Age: 65 Year
  Sex: Male

DRUGS (3)
  1. METFORMIN HYDROCHLORIDE. [Suspect]
     Active Substance: METFORMIN HYDROCHLORIDE
     Indication: PRODUCT USED FOR UNKNOWN INDICATION
     Route: 065
  2. SANDOSTATIN LAR DEPOT [Suspect]
     Active Substance: OCTREOTIDE ACETATE
     Indication: NEUROENDOCRINE TUMOUR
     Dosage: 30 MG, QMO (EVERY 4 WEEKS)
     Route: 030
     Dates: start: 20150629
  3. GLICLAZIDE [Suspect]
     Active Substance: GLICLAZIDE
     Indication: PRODUCT USED FOR UNKNOWN INDICATION
     Route: 065

REACTIONS (13)
  - Fatigue [Unknown]
  - Injection site pain [Unknown]
  - Blood glucose increased [Recovering/Resolving]
  - Blood pressure increased [Recovering/Resolving]
  - Blood calcium increased [Unknown]
  - Erythema [Unknown]
  - Blood pressure systolic increased [Recovering/Resolving]
  - Body temperature decreased [Unknown]
  - Middle ear effusion [Unknown]
  - Ear congestion [Unknown]
  - Blood iron decreased [Unknown]
  - Back pain [Unknown]
  - Malaise [Unknown]

NARRATIVE: CASE EVENT DATE: 20150727
